FAERS Safety Report 6259939-7 (Version None)
Quarter: 2009Q3

REPORT INFORMATION
  Report Type: 
  Country: None (occurrence: None)
  Receive Date: 20090708
  Receipt Date: 20090702
  Transmission Date: 20100115
  Serious: Yes (Hospitalization)
  Sender: FDA-Public Use
  Company Number: JP-BAYER-200812698BYL

PATIENT
  Age: 72 Year
  Sex: Male
  Weight: 59 kg

DRUGS (4)
  1. NEXAVAR [Suspect]
     Indication: RENAL CELL CARCINOMA STAGE IV
     Dosage: TOTAL DAILY DOSE: 800 MG  UNIT DOSE: 200 MG
     Route: 048
     Dates: start: 20080916, end: 20081007
  2. NEXAVAR [Suspect]
     Dosage: UNIT DOSE: 200 MG
     Route: 048
     Dates: start: 20081008
  3. MICARDIS [Concomitant]
     Route: 048
  4. ZYLORIC [Concomitant]
     Route: 048

REACTIONS (4)
  - CEREBRAL INFARCTION [None]
  - DIARRHOEA [None]
  - HERPES ZOSTER [None]
  - STOMATITIS [None]
